FAERS Safety Report 13929533 (Version 2)
Quarter: 2017Q3

REPORT INFORMATION
  Report Type: Spontaneous
  Country: US (occurrence: US)
  Receive Date: 20170901
  Receipt Date: 20170929
  Transmission Date: 20171127
  Serious: Yes (Other)
  Sender: FDA-Public Use
  Company Number: US-LUPIN PHARMACEUTICALS INC.-2017-04959

PATIENT
  Age: 68 Year
  Sex: Female
  Weight: 57.14 kg

DRUGS (1)
  1. MOXIFLOXACIN OPHTHALMIC SOLUTION [Suspect]
     Active Substance: MOXIFLOXACIN
     Indication: EYE INFECTION BACTERIAL
     Dosage: 1 DROP (5 ML), TID
     Route: 047
     Dates: start: 20170808, end: 20170813

REACTIONS (3)
  - Eye pruritus [Not Recovered/Not Resolved]
  - Eye infection [Not Recovered/Not Resolved]
  - Drug ineffective [Unknown]

NARRATIVE: CASE EVENT DATE: 20170808
